FAERS Safety Report 5828603-8 (Version None)
Quarter: 2008Q3

REPORT INFORMATION
  Report Type: 
  Country: None (occurrence: None)
  Receive Date: 20080731
  Receipt Date: 20080725
  Transmission Date: 20090109
  Serious: Yes (Hospitalization, Congenital Anomaly)
  Sender: FDA-Public Use
  Company Number: A0677807A

PATIENT
  Sex: Male
  Weight: 2.2 kg

DRUGS (19)
  1. PAXIL [Suspect]
     Indication: PANIC ATTACK
     Dosage: 20MG PER DAY
     Dates: start: 20030124
  2. PAROXETINE HCL [Suspect]
     Indication: ANXIETY
     Dosage: 30MG PER DAY
     Dates: start: 20031021
  3. MULTI-VITAMINS [Concomitant]
  4. FERROUS SULFATE TAB [Concomitant]
  5. CHLOROTHIAZIDE [Concomitant]
  6. DIGOXIN [Concomitant]
  7. PHENOBARBITAL TAB [Concomitant]
  8. POLYVISOL [Concomitant]
     Dates: start: 20040801, end: 20050601
  9. COLACE [Concomitant]
     Indication: CONSTIPATION
     Dates: start: 20040301
  10. MOTRIN [Concomitant]
     Indication: PAIN
     Dates: start: 20040101
  11. ZITHROMAX [Concomitant]
     Dates: start: 20040201
  12. VITAMIN TAB [Concomitant]
     Indication: PREGNANCY
     Dates: start: 20030101, end: 20040101
  13. TYLENOL [Concomitant]
     Indication: PAIN
     Dates: start: 20040301
  14. ALEVE [Concomitant]
     Indication: PAIN
     Dates: start: 20040301
  15. VICKS DAYQUIL SINUS PRESSURE + PAIN RELIEF W/ IBUPROFEN [Concomitant]
     Indication: PAIN
     Dates: start: 20040301
  16. COUGH + COLD MEDICATION [Concomitant]
     Dates: start: 20040301
  17. PEPTO BISMOL [Concomitant]
     Dates: start: 20040301
  18. TUMS [Concomitant]
     Dates: start: 20040301
  19. PEPCID [Concomitant]
     Dates: start: 20040301

REACTIONS (45)
  - ACIDOSIS [None]
  - ATRIAL SEPTAL DEFECT [None]
  - BRONCHIAL HYPERREACTIVITY [None]
  - CARDIAC DISORDER [None]
  - CARDIAC FAILURE CONGESTIVE [None]
  - CEREBRAL HAEMORRHAGE [None]
  - CHOLESTASIS [None]
  - CONGENITAL ANOMALY [None]
  - CONGENITAL PULMONARY HYPERTENSION [None]
  - CONVULSION [None]
  - DIAPHRAGMATIC HERNIA [None]
  - DIASTOLIC DYSFUNCTION [None]
  - DRUG EXPOSURE DURING PREGNANCY [None]
  - DYSMORPHISM [None]
  - DYSPHAGIA [None]
  - HEPATIC FAILURE [None]
  - HEPATIC INFARCTION [None]
  - HEPATIC NECROSIS [None]
  - HEPATITIS A ANTIBODY POSITIVE [None]
  - HEPATOMEGALY [None]
  - HYDRONEPHROSIS [None]
  - HYPOTENSION [None]
  - LIVER INJURY [None]
  - LUNG DISORDER [None]
  - LUNG INJURY [None]
  - METABOLIC ACIDOSIS [None]
  - NOONAN SYNDROME [None]
  - PATENT DUCTUS ARTERIOSUS [None]
  - PERSISTENT FOETAL CIRCULATION [None]
  - PORTAL VEIN THROMBOSIS [None]
  - PREMATURE BABY [None]
  - PULMONARY HYPOPLASIA [None]
  - PULMONARY MALFORMATION [None]
  - PULMONARY VALVE STENOSIS [None]
  - RENAL FAILURE [None]
  - RENAL INJURY [None]
  - RESPIRATORY DISORDER [None]
  - RESPIRATORY DISTRESS [None]
  - SHOCK [None]
  - SPEECH DISORDER [None]
  - SUPRAVENTRICULAR TACHYCARDIA [None]
  - TRICUSPID VALVE INCOMPETENCE [None]
  - VENTRICULAR DYSFUNCTION [None]
  - VENTRICULAR HYPERTROPHY [None]
  - VENTRICULAR SEPTAL DEFECT [None]
